FAERS Safety Report 4424900-1 (Version None)
Quarter: 2004Q3

REPORT INFORMATION
  Report Type: 
  Country: None (occurrence: None)
  Receive Date: 20040809
  Receipt Date: 20040726
  Transmission Date: 20050211
  Serious: Yes (Disabling)
  Sender: FDA-Public Use
  Company Number: HQWYE343522JUL04

PATIENT
  Age: 42 Year
  Sex: Female

DRUGS (7)
  1. EFFEXOR XR (VENLAFAXINE HYDROCHLORIDE,  CPSULE, EXTENDED RELEASE) [Suspect]
     Indication: BIPOLAR DISORDER
     Dosage: SEE IMAGE
     Route: 048
     Dates: start: 20031204, end: 20040427
  2. EFFEXOR XR (VENLAFAXINE HYDROCHLORIDE,  CPSULE, EXTENDED RELEASE) [Suspect]
     Indication: DEPRESSED MOOD
     Dosage: SEE IMAGE
     Route: 048
     Dates: start: 20031204, end: 20040427
  3. EFFEXOR XR (VENLAFAXINE HYDROCHLORIDE,  CPSULE, EXTENDED RELEASE) [Suspect]
     Indication: BIPOLAR DISORDER
     Dosage: SEE IMAGE
     Route: 048
     Dates: start: 20040428
  4. EFFEXOR XR (VENLAFAXINE HYDROCHLORIDE,  CPSULE, EXTENDED RELEASE) [Suspect]
     Indication: DEPRESSED MOOD
     Dosage: SEE IMAGE
     Route: 048
     Dates: start: 20040428
  5. LITHIUM (LITHIUM) [Concomitant]
  6. CLONAZEPAM [Concomitant]
  7. MULTIVITAMIN AND MINERAL SUPPLEMENT (MINERALS NOS/VITAMINS NOS) [Concomitant]

REACTIONS (3)
  - ABDOMINAL DISTENSION [None]
  - BLOOD LACTATE DEHYDROGENASE INCREASED [None]
  - THYROXINE FREE INCREASED [None]
